FAERS Safety Report 10152355 (Version 2)
Quarter: 2014Q2

REPORT INFORMATION
  Report Type: Spontaneous
  Country: SE (occurrence: SE)
  Receive Date: 20140505
  Receipt Date: 20140505
  Transmission Date: 20141212
  Serious: Yes (Hospitalization)
  Sender: FDA-Public Use
  Company Number: SE-BAYER-2014-010880

PATIENT
  Age: 50 Year
  Sex: Female
  Weight: 73 kg

DRUGS (2)
  1. MIRENA [Suspect]
     Indication: MENORRHAGIA
     Dosage: 20 MCG/24HR, CONT
     Route: 015
     Dates: start: 201303, end: 20140116
  2. MIRENA [Suspect]
     Indication: PAIN

REACTIONS (3)
  - Alopecia [Not Recovered/Not Resolved]
  - Dry eye [Not Recovered/Not Resolved]
  - Ovarian cyst [Not Recovered/Not Resolved]
